FAERS Safety Report 13481777 (Version 3)
Quarter: 2017Q4

REPORT INFORMATION
  Report Type: Spontaneous
  Country: CA (occurrence: CA)
  Receive Date: 20170425
  Receipt Date: 20171009
  Transmission Date: 20180320
  Serious: Yes (Other)
  Sender: FDA-Public Use
  Company Number: CA-ROCHE-1924834

PATIENT
  Age: 24 Year
  Sex: Male

DRUGS (10)
  1. XOLAIR [Suspect]
     Active Substance: OMALIZUMAB
     Route: 058
     Dates: start: 20170214
  2. DOXEPIN [Concomitant]
     Active Substance: DOXEPIN
     Indication: CHRONIC SPONTANEOUS URTICARIA
     Dosage: PRN
     Route: 048
  3. PREDNISONE. [Concomitant]
     Active Substance: PREDNISONE
     Indication: CHRONIC SPONTANEOUS URTICARIA
     Dosage: 1 DF, QD
     Route: 048
     Dates: start: 2016, end: 2016
  4. ELIDEL [Concomitant]
     Active Substance: PIMECROLIMUS
     Indication: CHRONIC SPONTANEOUS URTICARIA
     Dosage: 1 DF, QD
     Route: 061
  5. XOLAIR [Suspect]
     Active Substance: OMALIZUMAB
     Indication: CHRONIC SPONTANEOUS URTICARIA
     Route: 058
     Dates: start: 20161222
  6. XOLAIR [Suspect]
     Active Substance: OMALIZUMAB
     Route: 058
     Dates: start: 20170629
  7. ZYRTEC [Concomitant]
     Active Substance: CETIRIZINE HYDROCHLORIDE
     Indication: CHRONIC SPONTANEOUS URTICARIA
     Dosage: 2 DF, QD
     Route: 048
  8. VENTOLIN [Concomitant]
     Active Substance: ALBUTEROL SULFATE
     Indication: ASTHMA
     Dosage: 6-8 PUFFS PER DAY FOR 1 WEEK
     Route: 065
     Dates: start: 20170705
  9. XOLAIR [Suspect]
     Active Substance: OMALIZUMAB
     Indication: ASTHMA
     Dosage: UNK
     Route: 058
     Dates: start: 20170117
  10. ATARAX [Concomitant]
     Active Substance: HYDROXYZINE HYDROCHLORIDE
     Indication: CHRONIC SPONTANEOUS URTICARIA
     Dosage: PRN
     Route: 048

REACTIONS (3)
  - Blood pressure systolic increased [Recovered/Resolved]
  - Blastocystis infection [Unknown]
  - Stress [Unknown]

NARRATIVE: CASE EVENT DATE: 20170117
